FAERS Safety Report 14472704 (Version 10)
Quarter: 2018Q2

REPORT INFORMATION
  Report Type: Report from Study
  Country: JP (occurrence: JP)
  Receive Date: 20180201
  Receipt Date: 20180430
  Transmission Date: 20180711
  Serious: Yes (Hospitalization, Other)
  Sender: FDA-Public Use
  Company Number: JP-ROCHE-2051779

PATIENT
  Age: 78 Year
  Sex: Male
  Weight: 70 kg

DRUGS (58)
  1. NATRIX [Concomitant]
     Active Substance: INDAPAMIDE
     Indication: HYPERTENSION
     Route: 048
  2. SERENACE [Concomitant]
     Active Substance: HALOPERIDOL
     Indication: DELIRIUM
     Route: 042
     Dates: start: 20180109, end: 20180121
  3. NEOAMIYU [Concomitant]
     Active Substance: AMINO ACIDS
     Route: 042
     Dates: start: 20180115, end: 20180126
  4. VITAMEDIN (JAPAN) [Concomitant]
     Route: 042
     Dates: start: 20180115, end: 20180126
  5. NICORANDIL [Concomitant]
     Active Substance: NICORANDIL
     Indication: ANGINA PECTORIS
     Route: 048
     Dates: start: 20180116
  6. LYRICA [Concomitant]
     Active Substance: PREGABALIN
     Route: 048
     Dates: start: 20180108
  7. PLETAAL [Concomitant]
     Active Substance: CILOSTAZOL
     Indication: PERIPHERAL ARTERIAL OCCLUSIVE DISEASE
     Route: 048
     Dates: start: 20180108
  8. DAIPHEN [Concomitant]
     Active Substance: SULFAMETHOXAZOLE\TRIMETHOPRIM
     Route: 048
     Dates: start: 20180106, end: 20180303
  9. NAFAMOSTAT MESILATE [Concomitant]
     Active Substance: NAFAMOSTAT MESYLATE
     Route: 042
     Dates: start: 20180109, end: 20180115
  10. ISOSORBIDE DINITRATE. [Concomitant]
     Active Substance: ISOSORBIDE DINITRATE
     Indication: ACUTE MYOCARDIAL INFARCTION
     Route: 062
     Dates: start: 20180115, end: 20180202
  11. GASCON [Concomitant]
     Active Substance: DIMETHICONE
     Route: 048
     Dates: start: 20180122, end: 20180123
  12. ATEZOLIZUMAB. [Suspect]
     Active Substance: ATEZOLIZUMAB
     Indication: TRANSITIONAL CELL CARCINOMA
     Dosage: DATE OF MOST RECENT DOSE OF ATEZOLIZUMAB PRIOR TO EVENT ONSET 25/DEC/2017
     Route: 042
     Dates: start: 20171225
  13. GLACTIV [Concomitant]
     Active Substance: SITAGLIPTIN
     Indication: DIABETES MELLITUS
     Route: 048
  14. GLIMEPIRIDE. [Concomitant]
     Active Substance: GLIMEPIRIDE
     Indication: DIABETES MELLITUS
     Route: 048
  15. SODIUM CHLORIDE. [Concomitant]
     Active Substance: SODIUM CHLORIDE
     Route: 042
     Dates: start: 20180108, end: 20180109
  16. SERENACE [Concomitant]
     Active Substance: HALOPERIDOL
     Route: 042
     Dates: start: 20180125, end: 20180125
  17. GLUCOSE OTSUKA [Concomitant]
     Route: 042
     Dates: start: 20180109, end: 20180115
  18. DOPAMINE HYDROCHLORIDE. [Concomitant]
     Active Substance: DOPAMINE HYDROCHLORIDE
     Route: 042
     Dates: start: 20180109, end: 20180112
  19. LULLAN [Concomitant]
     Active Substance: PEROSPIRONE HYDROCHLORIDE
     Indication: DELIRIUM
     Route: 048
     Dates: start: 20180110, end: 20180110
  20. BAYASPIRIN [Concomitant]
     Active Substance: ASPIRIN
     Indication: ANGINA PECTORIS
     Route: 048
  21. ROCAIN (JAPAN) [Concomitant]
     Route: 058
     Dates: start: 20180108, end: 20180109
  22. MIDAZOLAM [Concomitant]
     Active Substance: MIDAZOLAM HYDROCHLORIDE
     Indication: DELIRIUM
     Route: 042
     Dates: start: 20180115, end: 20180115
  23. VEEN-D [Concomitant]
     Active Substance: DEXTROSE
     Route: 042
     Dates: start: 20180115, end: 20180131
  24. SENNOSIDE [Concomitant]
     Active Substance: SENNOSIDES
     Route: 048
     Dates: start: 20171129
  25. TAMIFLU [Concomitant]
     Active Substance: OSELTAMIVIR PHOSPHATE
     Route: 048
     Dates: start: 20171225, end: 20180103
  26. KENEI G [Concomitant]
     Active Substance: GLYCERIN
     Route: 054
     Dates: start: 20171228, end: 20171228
  27. MAGCOROL (JAPAN) [Concomitant]
     Route: 048
     Dates: start: 20180118, end: 20180118
  28. GASCON [Concomitant]
     Active Substance: DIMETHICONE
     Route: 048
     Dates: start: 20180119, end: 20180119
  29. ADONA (JAPAN) [Concomitant]
     Indication: ILEAL ULCER
     Route: 042
     Dates: start: 20180121, end: 20180131
  30. FLUMAZENIL. [Concomitant]
     Active Substance: FLUMAZENIL
     Route: 042
     Dates: start: 20180125, end: 20180125
  31. SOLACET F [Concomitant]
     Route: 042
     Dates: start: 20180113, end: 20180114
  32. PEROSPIRONE HCL [Concomitant]
     Active Substance: PEROSPIRONE HYDROCHLORIDE
     Indication: PROPHYLAXIS
     Route: 048
     Dates: start: 20180204, end: 20180301
  33. CARBOPLATIN. [Suspect]
     Active Substance: CARBOPLATIN
     Indication: TRANSITIONAL CELL CARCINOMA
     Dosage: AREA UNDER THE CONCENTRATION-TIME CURVE (AUC) OF 4.5 MILLIGRAM PER MILLILITER INTO MINUTE (4.5MG/ML/
     Route: 042
     Dates: start: 20171225
  34. PIOGLITAZONE. [Concomitant]
     Active Substance: PIOGLITAZONE
     Indication: DIABETES MELLITUS
     Route: 048
  35. METOCLOPRAMIDE. [Concomitant]
     Active Substance: METOCLOPRAMIDE
     Indication: PROPHYLAXIS OF NAUSEA AND VOMITING
     Route: 048
     Dates: start: 20171226, end: 20171229
  36. WHITE PETROLATUM [Concomitant]
     Active Substance: PETROLATUM
     Route: 061
     Dates: start: 20180109, end: 20180204
  37. LULLAN [Concomitant]
     Active Substance: PEROSPIRONE HYDROCHLORIDE
     Route: 048
     Dates: end: 20180203
  38. SODIUM PICOSULFATE [Concomitant]
     Active Substance: SODIUM PICOSULFATE
     Route: 048
     Dates: start: 20180118, end: 20180118
  39. INOVAN (JAPAN) [Concomitant]
     Route: 042
     Dates: start: 20180108, end: 20180109
  40. MIDAZOLAM [Concomitant]
     Active Substance: MIDAZOLAM HYDROCHLORIDE
     Route: 042
     Dates: start: 20180125, end: 20180125
  41. HEPARIN SODIUM. [Concomitant]
     Active Substance: HEPARIN SODIUM
     Indication: ANGINA PECTORIS
  42. SODIUM 1, 4-DIMETHYL-7-ISOPROPYLAZULENE-3-SULFONATE [Concomitant]
     Route: 042
     Dates: start: 20180110, end: 20180112
  43. DECADRON [Concomitant]
     Active Substance: DEXAMETHASONE
     Indication: PREMEDICATION
     Route: 048
     Dates: start: 20171226, end: 20171229
  44. ROZEREM [Concomitant]
     Active Substance: RAMELTEON
     Route: 048
     Dates: start: 20180110
  45. LUNESTA [Concomitant]
     Active Substance: ESZOPICLONE
     Route: 048
     Dates: start: 20180129
  46. GEMCITABINE [Suspect]
     Active Substance: GEMCITABINE\GEMCITABINE HYDROCHLORIDE
     Indication: TRANSITIONAL CELL CARCINOMA
     Dosage: MOST RECENT DOSE PRIOR TO EVENT ONSET: 25/DEC/2017,
     Route: 042
     Dates: start: 20171225
  47. AIMIX [Concomitant]
     Active Substance: AMLODIPINE BESYLATE\IRBESARTAN
     Indication: HYPERTENSION
     Route: 048
  48. FEBURIC [Concomitant]
     Active Substance: FEBUXOSTAT
     Indication: HYPERURICAEMIA
     Route: 048
     Dates: start: 2017
  49. TAKECAB [Concomitant]
     Active Substance: VONOPRAZAN FUMURATE
     Route: 048
  50. CRESTOR [Concomitant]
     Active Substance: ROSUVASTATIN CALCIUM
     Indication: HYPERLIPIDAEMIA
     Route: 048
  51. ELEJECT [Concomitant]
     Route: 042
     Dates: start: 20180115, end: 20180126
  52. HEPARIN SODIUM. [Concomitant]
     Active Substance: HEPARIN SODIUM
     Indication: PERIPHERAL ARTERIAL OCCLUSIVE DISEASE
     Route: 042
     Dates: start: 20180108, end: 20180118
  53. MAGNESIUM OXIDE. [Concomitant]
     Active Substance: MAGNESIUM OXIDE
     Route: 048
     Dates: start: 20171224
  54. ISOSORBIDE DINITRATE. [Concomitant]
     Active Substance: ISOSORBIDE DINITRATE
     Route: 062
     Dates: start: 20180203
  55. NEW LECICARBON [Concomitant]
     Active Substance: SODIUM BICARBONATE\SODIUM PHOSPHATE, MONOBASIC
     Route: 054
     Dates: start: 20180119, end: 20180119
  56. SODIUM PICOSULFATE [Concomitant]
     Active Substance: SODIUM PICOSULFATE
     Route: 048
     Dates: start: 20180122, end: 20180122
  57. TRANSAMIN [Concomitant]
     Active Substance: TRANEXAMIC ACID
     Indication: ILEAL ULCER
     Route: 042
     Dates: start: 20180121, end: 20180131
  58. DIAZEPAM. [Concomitant]
     Active Substance: DIAZEPAM
     Route: 042
     Dates: start: 20180125, end: 20180125

REACTIONS (8)
  - Acute kidney injury [Recovered/Resolved]
  - Platelet count decreased [Recovered/Resolved]
  - Hyperglycaemia [Recovered/Resolved]
  - Acute myocardial infarction [Recovered/Resolved]
  - Ileal ulcer [Recovered/Resolved]
  - Pneumonia [Recovered/Resolved]
  - Pyrexia [Recovered/Resolved]
  - Hepatic function abnormal [Recovered/Resolved]

NARRATIVE: CASE EVENT DATE: 20180103
